FAERS Safety Report 5656205-5 (Version None)
Quarter: 2008Q1

REPORT INFORMATION
  Report Type: 
  Country: None (occurrence: None)
  Receive Date: 20080308
  Receipt Date: 20080221
  Transmission Date: 20080703
  Serious: No
  Sender: FDA-Public Use
  Company Number: 08H-163-0313874-00

PATIENT
  Age: 62 Year
  Sex: Male
  Weight: 118.8424 kg

DRUGS (36)
  1. PANHEPRIN [Suspect]
     Indication: CENTRAL VENOUS CATHETERISATION
     Dosage: 300 UNIT, EVERY 8 HRS AND AS NEEDED, INTRAVENOUS
     Route: 042
     Dates: start: 20080205, end: 20080211
  2. ASPIRIN [Concomitant]
  3. BUMETANIDE [Concomitant]
  4. CARVEDILOL [Concomitant]
  5. ENOXAPARIN SODIUM [Concomitant]
  6. PANTOPRAZOLE SODIUM [Concomitant]
  7. POTASSIUM CHLORIDE [Concomitant]
  8. ALDACTONE [Concomitant]
  9. CLARITIN [Concomitant]
  10. ATACORD (BLOPRESS PLUS) [Concomitant]
  11. DIGOXIN [Concomitant]
  12. HYDROCORTISONE [Concomitant]
  13. FAMOTIDINE [Concomitant]
  14. DIPHENHYDRAMINE HCL [Concomitant]
  15. ALBUTEROL [Concomitant]
  16. NITROPASTE (GLYCERYL TRINITRATE) [Concomitant]
  17. NITROGLYCERIN [Concomitant]
  18. PROPOFOL [Concomitant]
  19. HEPARIN DRIP (HEPARIN) [Concomitant]
  20. DOPAMINE HCL [Concomitant]
  21. PHENYLEPHRINE (PHENYLEPHRINE) [Concomitant]
  22. AMIODARONE HCL [Concomitant]
  23. LEVAQUIN [Concomitant]
  24. ZOSYN [Concomitant]
  25. ALBUTEROL + IPRATROPIUM (SALBUTAMOL W/IPRATROPIUM) [Concomitant]
  26. ALBUMIN 5% (ALBUMIN) [Concomitant]
  27. METHYLPREDNISOLONE [Concomitant]
  28. ADENOSINE [Concomitant]
  29. HEPARIN FLUSHES (HEPARIN) [Concomitant]
  30. SALINE FLUSHES (SODIUM CHLORIDE) [Concomitant]
  31. PREDNISONE TAB [Concomitant]
  32. TEMAZEPAM [Concomitant]
  33. ASA EC (ACETYLSALICYLIC ACID) [Concomitant]
  34. SPIRIVA [Concomitant]
  35. CRESTOR [Concomitant]
  36. GUAIFENESIN LA (GUAIFENESIN) [Concomitant]

REACTIONS (4)
  - DYSPNOEA [None]
  - HYPERSENSITIVITY [None]
  - PRURITUS [None]
  - URTICARIA [None]
